FAERS Safety Report 9872314 (Version 1)
Quarter: 2014Q1

REPORT INFORMATION
  Report Type: Spontaneous
  Country: CL (occurrence: CL)
  Receive Date: 20140205
  Receipt Date: 20140205
  Transmission Date: 20141002
  Serious: Yes (Other)
  Sender: FDA-Public Use
  Company Number: CL-PFIZER INC-2014031996

PATIENT
  Age: 70 Year
  Sex: Female

DRUGS (4)
  1. XALATAN [Suspect]
     Indication: GLAUCOMA
     Dosage: 1 GTT, 1X/DAY
     Dates: start: 2005
  2. ARTIFICIAL TEARS [Concomitant]
     Dosage: 4 GTT, 1X/DAY
  3. ALPHAGAN [Concomitant]
     Dosage: 1 DF, 2X/DAY
  4. ASPIRINE [Concomitant]

REACTIONS (3)
  - Diverticulitis [Not Recovered/Not Resolved]
  - Gastritis [Not Recovered/Not Resolved]
  - Hypertension [Not Recovered/Not Resolved]
